FAERS Safety Report 12594904 (Version 1)
Quarter: 2016Q3

REPORT INFORMATION
  Report Type: Spontaneous
  Country: US (occurrence: US)
  Receive Date: 20160726
  Receipt Date: 20160726
  Transmission Date: 20161109
  Serious: No
  Sender: FDA-Public Use
  Company Number: US-UNITED THERAPEUTICS-UNT-2016-004506

PATIENT
  Age: 83 Year
  Sex: Female
  Weight: 74.79 kg

DRUGS (6)
  1. LETAIRIS [Concomitant]
     Active Substance: AMBRISENTAN
     Indication: PRODUCT USED FOR UNKNOWN INDICATION
  2. SILDENAFIL                         /01367502/ [Concomitant]
     Active Substance: SILDENAFIL
     Indication: PRODUCT USED FOR UNKNOWN INDICATION
  3. COUMADIN [Concomitant]
     Active Substance: WARFARIN SODIUM
     Indication: PRODUCT USED FOR UNKNOWN INDICATION
  4. TYVASO [Suspect]
     Active Substance: TREPROSTINIL
     Indication: PULMONARY HYPERTENSION
     Dosage: 18-54 MICROGRAMS, QID
     Dates: start: 20160218
  5. TYVASO [Suspect]
     Active Substance: TREPROSTINIL
     Dosage: UNK
  6. TYVASO [Suspect]
     Active Substance: TREPROSTINIL
     Dosage: UNK

REACTIONS (12)
  - Urinary tract infection [Unknown]
  - Diarrhoea [Unknown]
  - Chest pain [Unknown]
  - Autoimmune disorder [Unknown]
  - Drug dose omission [Unknown]
  - Dry mouth [Unknown]
  - Cough [Unknown]
  - Oedema peripheral [Recovering/Resolving]
  - Epistaxis [Unknown]
  - Throat irritation [Unknown]
  - Nasal congestion [Unknown]
  - Constipation [Unknown]

NARRATIVE: CASE EVENT DATE: 201603
